FAERS Safety Report 18671962 (Version 1)
Quarter: 2020Q4

REPORT INFORMATION
  Report Type: Spontaneous
  Country: US (occurrence: US)
  Receive Date: 20201228
  Receipt Date: 20201228
  Transmission Date: 20210114
  Serious: No
  Sender: FDA-Public Use
  Company Number: US-COOPERSURGICAL, INC.-US-2020CPS002790

PATIENT
  Age: 18 Year
  Sex: Female
  Weight: 48.98 kg

DRUGS (2)
  1. PARAGARD T 380A [Suspect]
     Active Substance: COPPER
     Indication: CONTRACEPTION
     Dosage: UNK
     Route: 015
     Dates: start: 20200902, end: 20201014
  2. FLUOXETINE [Concomitant]
     Active Substance: FLUOXETINE HYDROCHLORIDE
     Indication: DEPRESSION
     Dosage: 20 MG, UNK
     Route: 065

REACTIONS (9)
  - Pollakiuria [Unknown]
  - Blood urine present [Unknown]
  - Micturition urgency [Unknown]
  - Device dislocation [Recovered/Resolved]
  - Hypomenorrhoea [Recovered/Resolved]
  - Pain [Unknown]
  - Abdominal pain lower [Unknown]
  - Dysfunctional uterine bleeding [Unknown]
  - Genitourinary symptom [Unknown]

NARRATIVE: CASE EVENT DATE: 202009
